FAERS Safety Report 11315430 (Version 1)
Quarter: 2015Q3

REPORT INFORMATION
  Report Type: Spontaneous
  Country: US (occurrence: US)
  Receive Date: 20150728
  Receipt Date: 20150728
  Transmission Date: 20151125
  Serious: Yes (Hospitalization)
  Sender: FDA-Public Use
  Company Number: US-AMGEN-USASP2015073445

PATIENT
  Age: 53 Year
  Sex: Male

DRUGS (3)
  1. ENBREL [Suspect]
     Active Substance: ETANERCEPT
     Indication: PSORIASIS
     Dosage: 50 MG, 2 TIMES/WK
     Route: 065
     Dates: start: 2009
  2. CARVEDILOL. [Concomitant]
     Active Substance: CARVEDILOL
     Indication: HYPERTENSION
     Dosage: 12.5 MG, BID
  3. IRBESARTAN. [Concomitant]
     Active Substance: IRBESARTAN
     Indication: HYPERTENSION
     Dosage: 300 MG, QD

REACTIONS (11)
  - Arrhythmia [Unknown]
  - Atrial fibrillation [Unknown]
  - Hernia hiatus repair [Recovering/Resolving]
  - Heart rate increased [Unknown]
  - Hiatus hernia [Recovering/Resolving]
  - Clostridium difficile sepsis [Unknown]
  - Bronchitis [Unknown]
  - Discomfort [Unknown]
  - Cardiac flutter [Unknown]
  - Cardiac disorder [Unknown]
  - Asthenia [Unknown]

NARRATIVE: CASE EVENT DATE: 2014
